FAERS Safety Report 6252386-3 (Version None)
Quarter: 2009Q3

REPORT INFORMATION
  Report Type: 
  Country: None (occurrence: None)
  Receive Date: 20090701
  Receipt Date: 20090619
  Transmission Date: 20100115
  Serious: Yes (Life-Threatening, Hospitalization)
  Sender: FDA-Public Use
  Company Number: ES-PFIZER INC-2009221404

PATIENT
  Age: 64 Year

DRUGS (5)
  1. SOMATROPIN [Suspect]
     Indication: HYPOPITUITARISM
     Dosage: 0.2 MG, 1X/DAY
     Route: 058
     Dates: start: 19990203, end: 20090303
  2. HIDROALTESONA [Concomitant]
     Dosage: UNK
     Route: 048
     Dates: start: 19961001
  3. LEVOTHYROXINE SODIUM [Concomitant]
     Dosage: UNK
     Route: 048
     Dates: start: 19961001
  4. TESTOSTERONE [Concomitant]
     Dosage: UNK
     Route: 062
     Dates: start: 19961001
  5. DESMOPRESSIN [Concomitant]
     Dosage: UNK
     Dates: start: 19961001

REACTIONS (2)
  - BRAIN NEOPLASM [None]
  - NEOPLASM RECURRENCE [None]
